FAERS Safety Report 9703423 (Version 1)
Quarter: 2013Q4

REPORT INFORMATION
  Report Type: Report from Study
  Country: US (occurrence: US)
  Receive Date: 20131122
  Receipt Date: 20131122
  Transmission Date: 20140711
  Serious: Yes (Other)
  Sender: FDA-Public Use
  Company Number: US-ROCHE-1304483

PATIENT
  Sex: Female

DRUGS (10)
  1. XOLAIR [Suspect]
     Indication: PRODUCT USED FOR UNKNOWN INDICATION
     Dosage: EVERY 2 WEEKS
     Route: 065
  2. LEVOTHYROXINE [Concomitant]
  3. ASPIRIN [Concomitant]
  4. ZOCOR [Concomitant]
  5. COZAAR [Concomitant]
  6. VERAPAMIL [Concomitant]
  7. VENTOLIN [Concomitant]
  8. SINGULAIR [Concomitant]
  9. TADALAFIL [Concomitant]
  10. NEXIUM [Concomitant]

REACTIONS (17)
  - Dyspnoea [Unknown]
  - Cough [Unknown]
  - Dyspnoea exertional [Unknown]
  - Upper respiratory tract infection [Unknown]
  - Asthma [Unknown]
  - Nasal polyps [Unknown]
  - Tachycardia [Unknown]
  - Pulmonary hypertension [Unknown]
  - Hypertension [Unknown]
  - Gastrooesophageal reflux disease [Unknown]
  - Dyslipidaemia [Unknown]
  - Sleep apnoea syndrome [Unknown]
  - Depression [Unknown]
  - Rhinitis [Unknown]
  - Headache [Unknown]
  - Chills [Unknown]
  - Sinusitis [Unknown]
